FAERS Safety Report 23029697 (Version 4)
Quarter: 2024Q4

REPORT INFORMATION
  Report Type: Report from Study
  Country: JP (occurrence: JP)
  Receive Date: 20231004
  Receipt Date: 20241125
  Transmission Date: 20250115
  Serious: Yes (Other)
  Sender: TAKEDA
  Company Number: JP-TAKEDA-2023TJP012844

PATIENT
  Age: 20 Year
  Sex: Male
  Weight: 76.5 kg

DRUGS (14)
  1. VONICOG ALFA [Suspect]
     Active Substance: VONICOG ALFA
     Indication: Haemostasis
     Dosage: 1300 INTERNATIONAL UNIT
     Dates: start: 20210608, end: 20210608
  2. VONICOG ALFA [Suspect]
     Active Substance: VONICOG ALFA
     Indication: Haemorrhage prophylaxis
     Dosage: 1300 INTERNATIONAL UNIT
     Dates: start: 20210608, end: 20210608
  3. VONICOG ALFA [Suspect]
     Active Substance: VONICOG ALFA
     Indication: Von Willebrand^s disease
     Dosage: 1300 INTERNATIONAL UNIT
     Dates: start: 20210608, end: 20210608
  4. VONICOG ALFA [Suspect]
     Active Substance: VONICOG ALFA
     Dosage: 1300 INTERNATIONAL UNIT
     Dates: start: 20210608, end: 20210608
  5. VONICOG ALFA [Suspect]
     Active Substance: VONICOG ALFA
     Dosage: 3900 INTERNATIONAL UNIT
     Dates: start: 20210609, end: 20210613
  6. VONICOG ALFA [Suspect]
     Active Substance: VONICOG ALFA
     Dosage: UNK INTERNATIONAL UNIT
  7. VONICOG ALFA [Suspect]
     Active Substance: VONICOG ALFA
     Dosage: 2600 INTERNATIONAL UNIT, QOD
     Dates: start: 20210917
  8. VONICOG ALFA [Suspect]
     Active Substance: VONICOG ALFA
     Dosage: 2600 INTERNATIONAL UNIT
     Dates: start: 20210924, end: 20211216
  9. VONICOG ALFA [Suspect]
     Active Substance: VONICOG ALFA
     Dosage: 3900 INTERNATIONAL UNIT
     Dates: start: 20211217, end: 20220605
  10. VONICOG ALFA [Suspect]
     Active Substance: VONICOG ALFA
     Dosage: 2600 INTERNATIONAL UNIT, BID
     Dates: start: 20220606, end: 20220625
  11. CONFACT F [Concomitant]
     Active Substance: ANTIHEMOPHILIC FACTOR HUMAN
     Indication: Haemostasis
     Dosage: UNK
  12. CONFACT F [Concomitant]
     Active Substance: ANTIHEMOPHILIC FACTOR HUMAN
     Dosage: 2000 INTERNATIONAL UNIT
     Dates: start: 20210924, end: 20220605
  13. NOVOEIGHT [Concomitant]
     Active Substance: ANTIHEMOPHILIC FACTOR, HUMAN RECOMBINANT
     Indication: Haemostasis
     Dosage: 1000 INTERNATIONAL UNIT
     Dates: start: 20211127, end: 20220605
  14. FERINJECT [Concomitant]
     Active Substance: FERRIC CARBOXYMALTOSE
     Indication: Iron deficiency anaemia
     Dosage: UNK

REACTIONS (7)
  - Epistaxis [Recovered/Resolved]
  - Epistaxis [Recovered/Resolved]
  - Chest discomfort [Recovered/Resolved]
  - Off label use [Unknown]
  - Product use complaint [Unknown]
  - Off label use [Unknown]
  - Incorrect drug administration rate [Unknown]

NARRATIVE: CASE EVENT DATE: 20210601
